FAERS Safety Report 12926225 (Version 3)
Quarter: 2017Q1

REPORT INFORMATION
  Report Type: Report from Study
  Country: BR (occurrence: BR)
  Receive Date: 20161109
  Receipt Date: 20170206
  Transmission Date: 20170428
  Serious: Yes (Death, Hospitalization)
  Sender: FDA-Public Use
  Company Number: BR-JNJFOC-20161106386

PATIENT
  Sex: Female

DRUGS (2)
  1. STELARA [Suspect]
     Active Substance: USTEKINUMAB
     Indication: PSORIASIS
     Route: 058
     Dates: start: 20160204, end: 20160826
  2. STELARA [Suspect]
     Active Substance: USTEKINUMAB
     Indication: PSORIASIS
     Route: 058
     Dates: start: 20160204, end: 20160826

REACTIONS (2)
  - Anaemia [Fatal]
  - Urinary tract infection [Fatal]

NARRATIVE: CASE EVENT DATE: 2016
